FAERS Safety Report 10654236 (Version 1)
Quarter: 2014Q4

REPORT INFORMATION
  Report Type: Report from Study
  Country: NL (occurrence: NL)
  Receive Date: 20141216
  Receipt Date: 20141216
  Transmission Date: 20150529
  Serious: Yes (Hospitalization)
  Sender: FDA-Public Use
  Company Number: NL-SHIRE-NL201408817

PATIENT
  Age: 3 Year
  Sex: Male

DRUGS (1)
  1. IDURSULFASE [Suspect]
     Active Substance: IDURSULFASE
     Indication: MUCOPOLYSACCHARIDOSIS II
     Dosage: UNK, UNKNOWN
     Route: 041
     Dates: start: 20130702

REACTIONS (4)
  - Adenoidal disorder [Recovered/Resolved]
  - Medical device complication [Recovered/Resolved]
  - Ear disorder [Recovered/Resolved]
  - Tonsillar disorder [Recovered/Resolved]

NARRATIVE: CASE EVENT DATE: 20130820
